FAERS Safety Report 15591778 (Version 1)
Quarter: 2018Q4

REPORT INFORMATION
  Report Type: Spontaneous
  Country: BR (occurrence: BR)
  Receive Date: 20181106
  Receipt Date: 20181106
  Transmission Date: 20190205
  Serious: Yes (Other)
  Sender: FDA-Public Use
  Company Number: BR-JNJFOC-20181044997

PATIENT
  Sex: Male

DRUGS (3)
  1. SIMPONI [Suspect]
     Active Substance: GOLIMUMAB
     Indication: ANKYLOSING SPONDYLITIS
     Route: 058
     Dates: start: 20180103, end: 20180228
  2. ACECLOFENAC [Concomitant]
     Active Substance: ACECLOFENAC
     Route: 065
     Dates: start: 2018, end: 2018
  3. MUSCULARE [Concomitant]
     Route: 065
     Dates: start: 2018, end: 2018

REACTIONS (2)
  - Hypersensitivity [Unknown]
  - Colitis ulcerative [Unknown]

NARRATIVE: CASE EVENT DATE: 2018
